FAERS Safety Report 10156131 (Version 1)
Quarter: 2014Q2

REPORT INFORMATION
  Report Type: Spontaneous
  Country: US (occurrence: US)
  Receive Date: 20140506
  Receipt Date: 20140506
  Transmission Date: 20141212
  Serious: Yes (Death)
  Sender: FDA-Public Use
  Company Number: PHEH2014US009088

PATIENT
  Sex: Male

DRUGS (1)
  1. FORADIL [Suspect]
     Indication: DYSPNOEA
     Dosage: UNK UKN, BID

REACTIONS (2)
  - Atrioventricular block [Fatal]
  - Lung neoplasm malignant [Fatal]
